FAERS Safety Report 21455260 (Version 2)
Quarter: 2022Q4

REPORT INFORMATION
  Report Type: Spontaneous
  Country: BR (occurrence: BR)
  Receive Date: 20221014
  Receipt Date: 20221017
  Transmission Date: 20230113
  Serious: Yes (Other)
  Sender: FDA-Public Use
  Company Number: CN-NOVARTISPH-NVSC2022BR230943

PATIENT
  Sex: Female
  Weight: 62 kg

DRUGS (6)
  1. LOSARTAN [Suspect]
     Active Substance: LOSARTAN
     Indication: Hypertension
     Dosage: 1 DOSAGE FORM, Q12H (SATRTED 40 YEARS AGO)
     Route: 048
  2. ATENOLOL [Suspect]
     Active Substance: ATENOLOL
     Indication: Hypertension
     Dosage: 1 DOSAGE FORM, Q12H (STARTED 40 YEARS AGO)
     Route: 048
  3. PROGRAF [Concomitant]
     Active Substance: TACROLIMUS
     Indication: Pancreas transplant
     Dosage: 2 DOSAGE FORM, Q12H
     Route: 048
     Dates: start: 2005
  4. MYFORTIC [Concomitant]
     Active Substance: MYCOPHENOLATE SODIUM
     Indication: Pancreas transplant
     Dosage: 1 DOSAGE FORM, Q12H
     Route: 048
     Dates: start: 2002
  5. OMEPRAZOLE [Concomitant]
     Active Substance: OMEPRAZOLE
     Indication: Abdominal discomfort
     Dosage: 2 DOSAGE FORM, QD (IN MORNING)
     Route: 048
     Dates: start: 2005
  6. CERTICAN [Concomitant]
     Active Substance: EVEROLIMUS
     Indication: Pancreas transplant
     Dosage: 2 DOSAGE FORM, Q12H (2MG IN THE MORNING AND 2MG AT NIGHT)
     Route: 048
     Dates: start: 2007

REACTIONS (2)
  - Diabetes mellitus [Unknown]
  - Visual impairment [Unknown]
